FAERS Safety Report 7904628-3 (Version None)
Quarter: 2011Q4

REPORT INFORMATION
  Report Type: 
  Country: None (occurrence: None)
  Receive Date: 20111109
  Receipt Date: 20111102
  Transmission Date: 20120403
  Serious: Yes (Death)
  Sender: FDA-Public Use
  Company Number: US-GLAXOSMITHKLINE-A0942195A

PATIENT
  Age: 60 Year
  Sex: Male

DRUGS (8)
  1. CISPLATIN [Concomitant]
  2. CAMPTOSAR [Concomitant]
  3. ZOFRAN [Suspect]
     Indication: NAUSEA
     Dosage: 2MG EVERY 3 WEEKS
     Route: 042
     Dates: start: 20110119
  4. TAXOTERE [Concomitant]
  5. NEUPOGEN [Concomitant]
  6. ARIXTRA [Suspect]
     Indication: GASTRIC CANCER
     Dosage: 7.5MG UNKNOWN
     Route: 058
     Dates: start: 20110331
  7. EMEND [Concomitant]
  8. ALOXI [Concomitant]

REACTIONS (1)
  - DEATH [None]
